FAERS Safety Report 4955797-9 (Version None)
Quarter: 2006Q1

REPORT INFORMATION
  Report Type: 
  Country: None (occurrence: None)
  Receive Date: 20060328
  Receipt Date: 20060317
  Transmission Date: 20060701
  Serious: Yes (Death, Other)
  Sender: FDA-Public Use
  Company Number: KR-JNJFOC-20060304396

PATIENT
  Sex: Male
  Weight: 72 kg

DRUGS (3)
  1. REMINYL [Suspect]
     Indication: DEMENTIA ALZHEIMER'S TYPE
     Route: 048
  2. DIGOXIN [Concomitant]
     Route: 048
  3. FOSINOPRIL SODIUM [Concomitant]
     Route: 003

REACTIONS (3)
  - CARDIAC FAILURE [None]
  - GASTRIC CANCER RECURRENT [None]
  - MULTI-ORGAN FAILURE [None]
